FAERS Safety Report 11431295 (Version 1)
Quarter: 2015Q3

REPORT INFORMATION
  Report Type: Spontaneous
  Country: US (occurrence: US)
  Receive Date: 20150828
  Receipt Date: 20150828
  Transmission Date: 20151125
  Serious: Yes (Hospitalization, Other)
  Sender: FDA-Public Use
  Company Number: US-MEDA-2015080063

PATIENT
  Age: 64 Year
  Sex: Female
  Weight: 136 kg

DRUGS (3)
  1. DEMADEX [Suspect]
     Active Substance: TORSEMIDE
     Dates: end: 2011
  2. ALBUTEROL. [Concomitant]
     Active Substance: ALBUTEROL
     Indication: SEASONAL ALLERGY
     Dates: start: 1995
  3. WELLBUTRIN [Concomitant]
     Active Substance: BUPROPION HYDROCHLORIDE
     Indication: ANXIETY
     Dates: start: 2005

REACTIONS (4)
  - Anxiety [Unknown]
  - Coma [Recovered/Resolved]
  - Pneumonia [Unknown]
  - Fatigue [Unknown]

NARRATIVE: CASE EVENT DATE: 2011
